FAERS Safety Report 23655491 (Version 1)
Quarter: 2024Q1

REPORT INFORMATION
  Report Type: Spontaneous
  Country: PT (occurrence: None)
  Receive Date: 20240320
  Receipt Date: 20240320
  Transmission Date: 20240410
  Serious: Yes (Life-Threatening, Hospitalization, Other)
  Sender: FDA-Public Use
  Company Number: 2024A064785

PATIENT
  Age: 35429 Day
  Sex: Female

DRUGS (1)
  1. PULMICORT TURBUHALER [Suspect]
     Active Substance: BUDESONIDE
     Route: 055

REACTIONS (11)
  - Cardio-respiratory arrest [Unknown]
  - Hyponatraemia [Unknown]
  - Brain death [Unknown]
  - Critical illness [Unknown]
  - Respiratory tract infection [Unknown]
  - Blood gases abnormal [Unknown]
  - Arrhythmia [Unknown]
  - Choking [Unknown]
  - Gastritis [Unknown]
  - Lactic acidosis [Unknown]
  - Off label use [Unknown]

NARRATIVE: CASE EVENT DATE: 20170101
